FAERS Safety Report 6593627-2 (Version None)
Quarter: 2010Q1

REPORT INFORMATION
  Report Type: 
  Country: None (occurrence: None)
  Receive Date: 20100222
  Receipt Date: 20090924
  Transmission Date: 20100710
  Serious: No
  Sender: FDA-Public Use
  Company Number: US-BRISTOL-MYERS SQUIBB COMPANY-14775761

PATIENT
  Sex: Female

DRUGS (2)
  1. ORENCIA [Suspect]
     Indication: RHEUMATOID ARTHRITIS
     Dosage: 1ST INFUSION,2ND INFUSION ON 11-SEP-09.
     Dates: start: 20090101
  2. METHOTREXATE [Concomitant]

REACTIONS (1)
  - LYMPHADENOPATHY [None]
